FAERS Safety Report 6470065-4 (Version None)
Quarter: 2009Q4

REPORT INFORMATION
  Report Type: 
  Country: None (occurrence: None)
  Receive Date: 20091203
  Receipt Date: 20080523
  Transmission Date: 20100525
  Serious: Yes (Death, Hospitalization, Other)
  Sender: FDA-Public Use
  Company Number: PT-ELI_LILLY_AND_COMPANY-PT200711000674

PATIENT
  Age: 72 Year
  Sex: Male
  Weight: 58 kg

DRUGS (16)
  1. PEMETREXED [Suspect]
     Indication: NON-SMALL CELL LUNG CANCER
     Dosage: 905 MG, EVERY 3 WEEKS
     Route: 042
     Dates: start: 20071011, end: 20071011
  2. PEMETREXED [Suspect]
     Dosage: 663 MG, OTHER EVERY THREE WEEKS
     Route: 042
     Dates: start: 20071105
  3. VITAMIN B-12 [Concomitant]
     Indication: PROPHYLAXIS
     Dosage: UNK, UNK
  4. FOLIC ACID [Concomitant]
     Indication: PROPHYLAXIS
     Dosage: UNK, UNK
  5. DEXAMETHASONE TAB [Concomitant]
     Indication: PROPHYLAXIS
  6. CARVEDILOL [Concomitant]
     Indication: CARDIOMYOPATHY
     Dates: start: 20050101
  7. SERTRALINE HCL [Concomitant]
     Indication: DEPRESSION
     Dates: start: 20070101
  8. TRIMETAZIDINE [Concomitant]
     Dates: start: 20050101
  9. LORAZEPAM [Concomitant]
     Indication: INSOMNIA
     Dates: start: 20070101
  10. OMEPRAZOLE [Concomitant]
     Indication: GASTRITIS
     Dates: start: 20070501
  11. FOLIFER                            /00023601/ [Concomitant]
     Indication: ANAEMIA
     Dates: start: 20070615
  12. CENTRUM                            /00554501/ [Concomitant]
     Indication: PROPHYLAXIS
     Dates: start: 20070914
  13. MEGESTROL ACETATE [Concomitant]
     Dates: start: 20071105
  14. FUROSEMIDE [Concomitant]
     Dates: start: 20071105
  15. TIOTROPIUM [Concomitant]
     Indication: CHRONIC OBSTRUCTIVE PULMONARY DISEASE
     Dates: start: 20071105
  16. SERETIDE [Concomitant]
     Indication: CHRONIC OBSTRUCTIVE PULMONARY DISEASE
     Dosage: UNK, UNK
     Dates: start: 20071105

REACTIONS (3)
  - FEBRILE NEUTROPENIA [None]
  - PNEUMONIA [None]
  - PULMONARY EMBOLISM [None]
